FAERS Safety Report 6181840-8 (Version None)
Quarter: 2009Q2

REPORT INFORMATION
  Report Type: 
  Country: None (occurrence: None)
  Receive Date: 20090506
  Receipt Date: 20090409
  Transmission Date: 20091009
  Serious: Yes (Other)
  Sender: FDA-Public Use
  Company Number: US-AMGEN-KDL337728

PATIENT
  Sex: Female

DRUGS (2)
  1. PROCRIT [Suspect]
     Indication: DIALYSIS
     Route: 065
  2. MYCOPHENOLATE MOFETIL [Concomitant]

REACTIONS (4)
  - ANAEMIA [None]
  - RENAL TRANSPLANT [None]
  - THERAPEUTIC RESPONSE DECREASED [None]
  - TRANSPLANT FAILURE [None]
